FAERS Safety Report 8221384-2 (Version None)
Quarter: 2012Q1

REPORT INFORMATION
  Report Type: 
  Country: None (occurrence: None)
  Receive Date: 20120320
  Receipt Date: 20120316
  Transmission Date: 20120608
  Serious: Yes (Death, Other)
  Sender: FDA-Public Use
  Company Number: PHHY2012JP023733

PATIENT
  Sex: Female
  Weight: 45 kg

DRUGS (5)
  1. RED BLOOD CELLS, CONCENTRATED [Concomitant]
     Dosage: 2 U, UNK
     Dates: start: 20101018, end: 20110417
  2. AMLODIPINE [Concomitant]
     Indication: HYPERTENSION
     Dosage: 2.5 MG, UNK
     Route: 048
     Dates: start: 20051114, end: 20110418
  3. EXJADE [Suspect]
     Indication: IRON OVERLOAD
     Dosage: 750 MG, DAILY
     Route: 048
     Dates: start: 20101019, end: 20110418
  4. ZANTAC [Concomitant]
     Indication: GASTRIC ULCER
     Dosage: 300 MG,
     Route: 048
     Dates: start: 20051114, end: 20110418
  5. KETAS [Concomitant]
     Indication: CEREBRAL INFARCTION
     Dosage: 30 MG, UNK
     Route: 048
     Dates: start: 20060130, end: 20110418

REACTIONS (3)
  - DEATH [None]
  - NEOPLASM PROGRESSION [None]
  - NEOPLASM MALIGNANT [None]
